FAERS Safety Report 10609900 (Version 2)
Quarter: 2015Q1

REPORT INFORMATION
  Report Type: Other
  Country: US (occurrence: US)
  Receive Date: 20141126
  Receipt Date: 20150220
  Transmission Date: 20150720
  Serious: Yes (Death, Other)
  Sender: FDA-Public Use
  Company Number: US-SHIRE-US201408110

PATIENT
  Age: 81 Year
  Sex: Female
  Weight: 58.96 kg

DRUGS (1)
  1. LIALDA [Suspect]
     Active Substance: MESALAMINE
     Indication: COLITIS ULCERATIVE
     Dosage: 2.4 G(TWO 1.2G TABLETS), 1X/DAY:QD
     Route: 048
     Dates: end: 20141116

REACTIONS (1)
  - Death [Fatal]

NARRATIVE: CASE EVENT DATE: 20141116
